FAERS Safety Report 12727033 (Version 1)
Quarter: 2016Q3

REPORT INFORMATION
  Report Type: Spontaneous
  Country: US (occurrence: US)
  Receive Date: 20160909
  Receipt Date: 20160909
  Transmission Date: 20161109
  Serious: No
  Sender: FDA-Public Use
  Company Number: US-009507513-1608USA011152

PATIENT
  Sex: Male

DRUGS (1)
  1. MEVACOR [Suspect]
     Active Substance: LOVASTATIN
     Route: 048

REACTIONS (1)
  - Drug hypersensitivity [Unknown]
